FAERS Safety Report 4713902-3 (Version None)
Quarter: 2005Q3

REPORT INFORMATION
  Report Type: 
  Country: None (occurrence: None)
  Receive Date: 20050713
  Receipt Date: 20050705
  Transmission Date: 20060218
  Serious: Yes (Death, Hospitalization, Other)
  Sender: FDA-Public Use
  Company Number: 163-20785-05060081

PATIENT
  Age: 70 Year
  Sex: Male

DRUGS (1)
  1. THALOMID [Suspect]
     Indication: MYELODYSPLASTIC SYNDROME
     Dosage: 50 MG, DAILY, ORAL
     Route: 048
     Dates: start: 20050120, end: 20050512

REACTIONS (3)
  - CARDIAC FUNCTION DISTURBANCE POSTOPERATIVE [None]
  - CARDIOPULMONARY FAILURE [None]
  - MYOCARDIAL INFARCTION [None]
